FAERS Safety Report 5280253-0 (Version None)
Quarter: 2007Q1

REPORT INFORMATION
  Report Type: 
  Country: None (occurrence: None)
  Receive Date: 20070329
  Receipt Date: 20070328
  Transmission Date: 20070707
  Serious: Yes (Other)
  Sender: FDA-Public Use
  Company Number: US-GLAXOSMITHKLINE-A0636888A

PATIENT
  Sex: Female

DRUGS (5)
  1. WELLBUTRIN XL [Suspect]
     Dosage: 300MG PER DAY
     Route: 048
     Dates: start: 19990101
  2. BUPROPION HCL [Suspect]
     Dosage: 150MG TWICE PER DAY
     Route: 048
     Dates: start: 20060101, end: 20060101
  3. WELLBUTRIN XL [Suspect]
     Dosage: 300MG PER DAY
     Route: 048
  4. TRI-EST [Concomitant]
  5. THYROID TAB [Concomitant]

REACTIONS (10)
  - BRADYPHRENIA [None]
  - DEPRESSION [None]
  - DRUG INEFFECTIVE [None]
  - HEADACHE [None]
  - ILL-DEFINED DISORDER [None]
  - IMPAIRED WORK ABILITY [None]
  - MALAISE [None]
  - MUSCLE TWITCHING [None]
  - PARAESTHESIA [None]
  - SUICIDAL IDEATION [None]
